FAERS Safety Report 22223764 (Version 1)
Quarter: 2023Q2

REPORT INFORMATION
  Report Type: Spontaneous
  Country: US (occurrence: None)
  Receive Date: 20230417
  Receipt Date: 20230417
  Transmission Date: 20230721
  Serious: Yes (Other)
  Sender: FDA-Public Use
  Company Number: None

PATIENT
  Age: 52 Year
  Sex: Female

DRUGS (10)
  1. DARAPRIM [Suspect]
     Active Substance: PYRIMETHAMINE
     Indication: Toxoplasmosis prophylaxis
     Dosage: 75 MG ONCE DAILY ORAL
     Route: 048
  2. LINEZOLID [Concomitant]
     Active Substance: LINEZOLID
  3. TYLENOL [Concomitant]
     Active Substance: ACETAMINOPHEN
  4. LEUCOVORIN [Concomitant]
     Active Substance: LEUCOVORIN
  5. BIKTARVY [Concomitant]
     Active Substance: BICTEGRAVIR SODIUM\EMTRICITABINE\TENOFOVIR ALAFENAMIDE FUMARATE
  6. AZITHROMYCIN [Concomitant]
     Active Substance: AZITHROMYCIN
  7. BUSPIRONE [Concomitant]
     Active Substance: BUSPIRONE HYDROCHLORIDE
  8. IMIQUIMOD [Concomitant]
     Active Substance: IMIQUIMOD
  9. LEVETIRACETAM [Concomitant]
     Active Substance: LEVETIRACETAM
  10. ATOVAQUONE [Concomitant]
     Active Substance: ATOVAQUONE

REACTIONS (2)
  - Nausea [None]
  - Constipation [None]
